FAERS Safety Report 5726973-2 (Version None)
Quarter: 2008Q2

REPORT INFORMATION
  Report Type: 
  Country: None (occurrence: None)
  Receive Date: 20080501
  Receipt Date: 20070611
  Transmission Date: 20081010
  Serious: Yes (Other)
  Sender: FDA-Public Use
  Company Number: PHEH2007US08627

PATIENT
  Sex: Female

DRUGS (1)
  1. DIOVAN HCT [Suspect]
     Indication: HYPERTENSION
     Dosage: 160MG VAL/HCT, QD, ORAL ; 80 MG VAL/HCT, QD,ORAL
     Route: 048
     Dates: start: 20040101

REACTIONS (3)
  - ALOPECIA [None]
  - DIZZINESS POSTURAL [None]
  - HYPOTENSION [None]
